FAERS Safety Report 7704636-1 (Version None)
Quarter: 2011Q3

REPORT INFORMATION
  Report Type: 
  Country: None (occurrence: None)
  Receive Date: 20110823
  Receipt Date: 20110819
  Transmission Date: 20111222
  Serious: Yes (Death, Hospitalization)
  Sender: FDA-Public Use
  Company Number: FR-GLAXOSMITHKLINE-B0720268A

PATIENT
  Sex: Female
  Weight: 55 kg

DRUGS (12)
  1. ACETAMINOPHEN AND CODEINE PHOSPHATE [Concomitant]
     Dosage: 2TAB THREE TIMES PER DAY
     Route: 048
     Dates: start: 20110311, end: 20110404
  2. ARIXTRA [Suspect]
     Indication: VENOUS THROMBOSIS
     Dosage: 5MG PER DAY
     Route: 058
     Dates: start: 20110315, end: 20110325
  3. NEXIUM [Concomitant]
     Dosage: 20MG PER DAY
     Route: 048
     Dates: start: 20110304, end: 20110404
  4. FORTIMEL [Concomitant]
     Route: 065
  5. FORLAX [Concomitant]
     Dosage: 20G PER DAY
     Route: 048
     Dates: start: 20110318, end: 20110404
  6. DIGOXIN [Concomitant]
     Dosage: .125MG PER DAY
     Route: 048
     Dates: start: 20110304, end: 20110404
  7. ALPRAZOLAM [Concomitant]
     Dosage: .125MG PER DAY
     Route: 048
     Dates: start: 20110303, end: 20110403
  8. PREDNISONE [Concomitant]
     Dosage: 20MG PER DAY
     Route: 065
  9. ASPIRIN [Concomitant]
     Dosage: 75MG PER DAY
     Route: 065
  10. ZOMETA [Concomitant]
     Route: 065
  11. TPN [Concomitant]
     Dosage: 3UNIT PER DAY
     Route: 065
  12. LANSOPRAZOLE [Concomitant]
     Dosage: 15MG PER DAY
     Route: 065

REACTIONS (3)
  - HAEMATOMA [None]
  - UNDERDOSE [None]
  - PAIN [None]
